FAERS Safety Report 5485863-3 (Version None)
Quarter: 2007Q4

REPORT INFORMATION
  Report Type: 
  Country: None (occurrence: None)
  Receive Date: 20071015
  Receipt Date: 20071002
  Transmission Date: 20080405
  Serious: Yes (Hospitalization)
  Sender: FDA-Public Use
  Company Number: FI-ELI_LILLY_AND_COMPANY-FI200710000435

PATIENT
  Age: 47 Year
  Sex: Female

DRUGS (9)
  1. CYMBALTA [Suspect]
     Indication: DEPRESSION
     Dosage: 60 MG, DAILY (1/D)
     Route: 048
     Dates: start: 20070830
  2. ATARAX /00058402/ [Concomitant]
     Dosage: UNK, UNKNOWN
  3. NEURONTIN [Concomitant]
     Dosage: UNK, UNKNOWN
  4. SIRDALUD [Concomitant]
     Dosage: UNK, UNKNOWN
  5. IMOVANE [Concomitant]
     Dosage: UNK, UNKNOWN
  6. PANACOD [Concomitant]
     Dosage: UNK, UNKNOWN
  7. BUVENTOL [Concomitant]
     Indication: ASTHMA
     Dosage: UNK, UNKNOWN
  8. BECLOMET [Concomitant]
     Indication: ASTHMA
     Dosage: UNK, UNKNOWN
  9. PANTOPRAZOLE SODIUM [Concomitant]
     Dosage: UNK, UNKNOWN

REACTIONS (1)
  - RHABDOMYOLYSIS [None]
